FAERS Safety Report 7216253-0 (Version None)
Quarter: 2011Q1

REPORT INFORMATION
  Report Type: 
  Country: None (occurrence: None)
  Receive Date: 20110105
  Receipt Date: 20110105
  Transmission Date: 20110831
  Serious: Yes (Life-Threatening, Hospitalization)
  Sender: FDA-Public Use
  Company Number: None

PATIENT
  Sex: Male
  Weight: 70.3075 kg

DRUGS (1)
  1. PROPOXYPHENE HYDROCHLORIDE [Suspect]
     Indication: PAIN IN EXTREMITY
     Dosage: 1 TABLET EVERY 4-6 HRS
     Dates: start: 20101122, end: 20101215

REACTIONS (3)
  - HEAD INJURY [None]
  - CEREBRAL HAEMORRHAGE [None]
  - FALL [None]
